FAERS Safety Report 21478531 (Version 1)
Quarter: 2022Q4

REPORT INFORMATION
  Report Type: Spontaneous
  Country: TW (occurrence: None)
  Receive Date: 20221019
  Receipt Date: 20221019
  Transmission Date: 20230112
  Serious: Yes (Other)
  Sender: FDA-Public Use
  Company Number: TW-ROCHE-3202812

PATIENT
  Age: 48 Year
  Sex: Female

DRUGS (1)
  1. KADCYLA [Suspect]
     Active Substance: ADO-TRASTUZUMAB EMTANSINE
     Indication: Breast cancer metastatic
     Dosage: UNKNOWN DOSE
     Route: 065

REACTIONS (3)
  - Metastases to lung [Unknown]
  - Drug resistance [Unknown]
  - Pleural effusion [Unknown]

NARRATIVE: CASE EVENT DATE: 20220501
